FAERS Safety Report 6744894-3 (Version None)
Quarter: 2010Q2

REPORT INFORMATION
  Report Type: 
  Country: None (occurrence: None)
  Receive Date: 20100527
  Receipt Date: 20100520
  Transmission Date: 20101027
  Serious: Yes (Other)
  Sender: FDA-Public Use
  Company Number: US-ALLERGAN-1006607US

PATIENT
  Sex: Female

DRUGS (2)
  1. RESTASIS [Suspect]
     Indication: DRY EYE
     Dosage: 1 GTT, Q12H
     Route: 047
  2. OPTIVE [Concomitant]
     Indication: DRY EYE
     Dosage: UNK
     Route: 047

REACTIONS (7)
  - EYE INJURY [None]
  - EYE PAIN [None]
  - EYE SWELLING [None]
  - LACRIMATION INCREASED [None]
  - OCULAR HYPERAEMIA [None]
  - PRODUCT QUALITY ISSUE [None]
  - SCLERAL DISORDER [None]
